FAERS Safety Report 26119296 (Version 1)
Quarter: 2025Q4

REPORT INFORMATION
  Report Type: Spontaneous
  Country: GB (occurrence: GB)
  Receive Date: 20251204
  Receipt Date: 20251204
  Transmission Date: 20260117
  Serious: Yes (Other)
  Sender: AUROBINDO
  Company Number: GB-MHRA-MED-202511210400202710-JYGVR

PATIENT
  Age: 68 Year
  Sex: Female
  Weight: 66 kg

DRUGS (2)
  1. CIPROFLOXACIN\FLUOCINOLONE ACETONIDE [Suspect]
     Active Substance: CIPROFLOXACIN\FLUOCINOLONE ACETONIDE
     Indication: Diverticulitis
     Dosage: UNK
     Route: 065
     Dates: start: 20251118, end: 20251120
  2. CIPROFLOXACIN\FLUOCINOLONE ACETONIDE [Suspect]
     Active Substance: CIPROFLOXACIN\FLUOCINOLONE ACETONIDE
     Indication: Product used for unknown indication
     Dosage: UNK
     Route: 065

REACTIONS (4)
  - Headache [Recovering/Resolving]
  - Confusional state [Recovering/Resolving]
  - Eye pain [Recovering/Resolving]
  - Nausea [Recovered/Resolved]

NARRATIVE: CASE EVENT DATE: 20251119
